FAERS Safety Report 6679703 (Version 2)
Quarter: 2013Q2

REPORT INFORMATION
  Report Type: Spontaneous
  Country: CA (occurrence: CA)
  Receive Date: 20080624
  Receipt Date: 20130401
  Transmission Date: 20140414
  Serious: Yes (Death)
  Sender: FDA-Public Use
  Company Number: CA-PFIZER INC-2008050730

PATIENT
  Age: 48 Year
  Sex: Male

DRUGS (7)
  1. SERTRALINE HCL [Suspect]
     Dosage: UNK
  2. LORAZEPAM [Interacting]
     Dosage: UNK
  3. MORPHINE [Interacting]
     Dosage: UNK
  4. LONARID [Interacting]
     Dosage: UNK
     Route: 048
  5. BISACODYL [Suspect]
     Dosage: UNK
  6. CLONAZEPAM [Suspect]
     Dosage: UNK
  7. ACETAMINOPHEN W/CODEINE [Interacting]
     Dosage: UNK

REACTIONS (7)
  - Serotonin syndrome [Fatal]
  - Respiratory depression [Fatal]
  - Pulmonary oedema [Fatal]
  - Bronchopneumonia [Fatal]
  - Drug interaction [Fatal]
  - Toxicity to various agents [Fatal]
  - Arteriosclerosis [Fatal]
